FAERS Safety Report 11837946 (Version 1)
Quarter: 2015Q4

REPORT INFORMATION
  Report Type: Spontaneous
  Country: US (occurrence: US)
  Receive Date: 20151215
  Receipt Date: 20151215
  Transmission Date: 20160305
  Serious: Yes (Hospitalization)
  Sender: FDA-Public Use
  Company Number: US-GLAXOSMITHKLINE-US2015176332

PATIENT
  Age: 13 Year
  Sex: Male

DRUGS (3)
  1. FLOVENT HFA [Suspect]
     Active Substance: FLUTICASONE PROPIONATE
     Indication: ASTHMA
     Dosage: 1 PUFF(S), BID
     Route: 055
  2. SINGULAIR [Concomitant]
     Active Substance: MONTELUKAST SODIUM
  3. BREO ELLIPTA [Suspect]
     Active Substance: FLUTICASONE FUROATE\VILANTEROL TRIFENATATE
     Indication: ASTHMA
     Dosage: 1 PUFF(S), 1D
     Route: 055
     Dates: start: 20151208

REACTIONS (5)
  - Drug administered to patient of inappropriate age [Unknown]
  - Drug ineffective [Not Recovered/Not Resolved]
  - Asthma [Not Recovered/Not Resolved]
  - Lung disorder [Not Recovered/Not Resolved]
  - Multiple allergies [Unknown]

NARRATIVE: CASE EVENT DATE: 201504
